FAERS Safety Report 6760908-9 (Version None)
Quarter: 2010Q2

REPORT INFORMATION
  Report Type: 
  Country: None (occurrence: None)
  Receive Date: 20100608
  Receipt Date: 20100604
  Transmission Date: 20101027
  Serious: Yes (Death, Other)
  Sender: FDA-Public Use
  Company Number: PHHO2010JP08495

PATIENT
  Sex: Male
  Weight: 42 kg

DRUGS (5)
  1. TASIGNA [Suspect]
     Indication: CHRONIC MYELOID LEUKAEMIA
     Dosage: 800 MG DAILY
     Route: 048
     Dates: start: 20080707
  2. MAGNESIUM OXIDE [Concomitant]
     Indication: CONSTIPATION
  3. BACTROBAN [Concomitant]
     Indication: OTITIS MEDIA CHRONIC
     Dosage: UNK
  4. LOXONIN [Concomitant]
     Indication: OTITIS MEDIA CHRONIC
  5. MUCOSTA [Concomitant]
     Indication: PROPHYLAXIS

REACTIONS (2)
  - CACHEXIA [None]
  - DEATH [None]
